FAERS Safety Report 13616001 (Version 15)
Quarter: 2019Q4

REPORT INFORMATION
  Report Type: Report from Study
  Country: PL (occurrence: PL)
  Receive Date: 20170606
  Receipt Date: 20191105
  Transmission Date: 20200122
  Serious: Yes (Life-Threatening, Hospitalization)
  Sender: FDA-Public Use
  Company Number: PL-ROCHE-1943613

PATIENT
  Age: 68 Year
  Sex: Male
  Weight: 71 kg

DRUGS (12)
  1. LACIDOENTER [Concomitant]
     Indication: PHARYNGITIS
     Route: 048
     Dates: start: 20170517, end: 20170521
  2. CONCOR [Concomitant]
     Active Substance: BISOPROLOL FUMARATE
     Route: 048
  3. RED BLOOD CELLS, CONCENTRATED [Concomitant]
     Active Substance: HUMAN RED BLOOD CELL
     Indication: ANAEMIA
     Dosage: DOSE: 2 UNITS
     Route: 042
     Dates: start: 20170601, end: 20170601
  4. RED BLOOD CELLS, CONCENTRATED [Concomitant]
     Active Substance: HUMAN RED BLOOD CELL
     Dosage: DOSE: 1 UNITS
     Route: 042
     Dates: start: 20180707, end: 20180709
  5. PYRALGINA [Concomitant]
     Active Substance: METAMIZOLE MAGNESIUM
     Indication: PHARYNGITIS
     Route: 065
     Dates: start: 20170511, end: 20170516
  6. CEFUROKSIM [Concomitant]
     Indication: PHARYNGITIS
     Route: 065
     Dates: start: 20170511, end: 20170516
  7. APAP [Concomitant]
     Active Substance: ACETAMINOPHEN
     Indication: PHARYNGITIS
     Route: 065
     Dates: start: 20170511, end: 20170516
  8. RED BLOOD CELLS, CONCENTRATED [Concomitant]
     Active Substance: HUMAN RED BLOOD CELL
     Indication: APLASTIC ANAEMIA
     Dosage: DAILY DOSE- 2 UNIT.
     Route: 042
     Dates: start: 20170825, end: 20170825
  9. PLATELETS [Concomitant]
     Active Substance: HUMAN PLATELET, ALLOGENIC
     Indication: APLASTIC ANAEMIA
     Dosage: 1 UNIT
     Route: 042
     Dates: start: 20180707, end: 20180709
  10. ATEZOLIZUMAB. [Suspect]
     Active Substance: ATEZOLIZUMAB
     Indication: NEOPLASM
     Dosage: MOST RECENT DOSE ON 28/APR/2017 (START TIME:14 50)
     Route: 042
     Dates: start: 20170428
  11. TAROMENTIN [AMOXICILLIN;CLAVULANIC ACID] [Concomitant]
     Indication: PHARYNGITIS
     Route: 065
     Dates: start: 20170511, end: 20170516
  12. XORIMAX [Concomitant]
     Active Substance: CEFUROXIME AXETIL
     Indication: PHARYNGITIS
     Route: 048
     Dates: start: 20170517, end: 20170521

REACTIONS (2)
  - Granulocytopenia [Recovered/Resolved]
  - Thrombocytopenia [Recovering/Resolving]

NARRATIVE: CASE EVENT DATE: 20170523
